FAERS Safety Report 18495946 (Version 2)
Quarter: 2020Q4

REPORT INFORMATION
  Report Type: Spontaneous
  Country: US (occurrence: US)
  Receive Date: 20201112
  Receipt Date: 20201117
  Transmission Date: 20210114
  Serious: Yes (Disabling)
  Sender: FDA-Public Use
  Company Number: US-TEVA-2020-US-1848135

PATIENT
  Sex: Female

DRUGS (4)
  1. TAXOTERE [Suspect]
     Active Substance: DOCETAXEL
     Dosage: 6 COURSES
     Route: 065
     Dates: start: 20120309, end: 20120802
  2. DOCETAXEL. [Suspect]
     Active Substance: DOCETAXEL
     Dosage: 6 COURSES
     Route: 065
     Dates: start: 20120309, end: 20120802
  3. DOCETAXEL. [Suspect]
     Active Substance: DOCETAXEL
     Dosage: 6 COURSE
     Route: 065
     Dates: start: 20120309, end: 20120802
  4. DOCEFREZ [Suspect]
     Active Substance: DOCETAXEL ANHYDROUS
     Dosage: 6 COURSES
     Route: 065
     Dates: start: 20120309, end: 20120802

REACTIONS (1)
  - Alopecia [Not Recovered/Not Resolved]
